APPROVED DRUG PRODUCT: ALENDRONATE SODIUM
Active Ingredient: ALENDRONATE SODIUM
Strength: EQ 35MG BASE
Dosage Form/Route: TABLET;ORAL
Application: A075871 | Product #004
Applicant: CHARTWELL RX SCIENCES LLC
Approved: Apr 22, 2009 | RLD: No | RS: No | Type: DISCN